FAERS Safety Report 12245756 (Version 1)
Quarter: 2016Q2

REPORT INFORMATION
  Report Type: Spontaneous
  Country: FR (occurrence: FR)
  Receive Date: 20160407
  Receipt Date: 20160407
  Transmission Date: 20160815
  Serious: Yes (Other)
  Sender: FDA-Public Use
  Company Number: FR-CIPLA LTD.-2016FR03376

PATIENT

DRUGS (3)
  1. GRANULOCYTE-COLONY STIMULATING FACTOR (G-CSF) [Concomitant]
     Dosage: 150 ?G/M2/DAY, ON DAYS 5 TO 12
     Route: 065
  2. EPIRUBICIN [Suspect]
     Active Substance: EPIRUBICIN
     Indication: BREAST CANCER METASTATIC
     Dosage: 90 MG/M2, 15-MIN CONSTANT RATE
  3. DOCETAXEL. [Suspect]
     Active Substance: DOCETAXEL
     Indication: BREAST CANCER METASTATIC
     Dosage: 90 MG/M2, 1-H CONSTANT RATE

REACTIONS (4)
  - Mucosal inflammation [Unknown]
  - Asthenia [Unknown]
  - Palmar-plantar erythrodysaesthesia syndrome [Unknown]
  - Vomiting [Unknown]
